FAERS Safety Report 5566258-0 (Version None)
Quarter: 2007Q4

REPORT INFORMATION
  Report Type: 
  Country: None (occurrence: None)
  Receive Date: 20071219
  Receipt Date: 20071213
  Transmission Date: 20080405
  Serious: Yes (Disabling)
  Sender: FDA-Public Use
  Company Number: AT-BAYER-200718144GPV

PATIENT
  Age: 64 Year
  Sex: Male
  Weight: 72 kg

DRUGS (4)
  1. NEXAVAR [Suspect]
     Indication: ANGIOSARCOMA
     Route: 048
     Dates: start: 20070911, end: 20071008
  2. NEXAVAR [Suspect]
     Route: 048
     Dates: start: 20071011, end: 20071107
  3. NEXAVAR [Suspect]
     Route: 048
     Dates: start: 20071116, end: 20071129
  4. NEXAVAR [Suspect]
     Route: 048
     Dates: start: 20071130

REACTIONS (5)
  - LACRIMATION INCREASED [None]
  - MUSCLE SPASMS [None]
  - ONYCHOMADESIS [None]
  - RASH [None]
  - RHINORRHOEA [None]
